FAERS Safety Report 10335645 (Version 2)
Quarter: 2014Q3

REPORT INFORMATION
  Report Type: Report from Study
  Country: US (occurrence: US)
  Receive Date: 20140723
  Receipt Date: 20140723
  Transmission Date: 20150326
  Serious: Yes (Hospitalization)
  Sender: FDA-Public Use
  Company Number: US-SANOFI-AVENTIS-2013SA066954

PATIENT
  Age: 81 Year
  Sex: Female
  Weight: 66 kg

DRUGS (10)
  1. PREDNISONE. [Concomitant]
     Active Substance: PREDNISONE
     Dosage: FREQUENCY: EVERY OTHER DAY
     Route: 048
  2. ASPIRIN. [Concomitant]
     Active Substance: ASPIRIN
     Route: 065
  3. JEVTANA [Suspect]
     Active Substance: CABAZITAXEL
     Indication: GASTRIC CANCER
     Route: 042
     Dates: start: 20130107, end: 20130107
  4. AMITRIPTYLINE [Concomitant]
     Active Substance: AMITRIPTYLINE
     Route: 048
  5. JEVTANA [Suspect]
     Active Substance: CABAZITAXEL
     Indication: GASTRIC CANCER
     Route: 042
     Dates: start: 20130624, end: 20130920
  6. ONDANSETRON [Concomitant]
     Active Substance: ONDANSETRON
     Route: 048
  7. ATIVAN [Concomitant]
     Active Substance: LORAZEPAM
     Route: 048
  8. DICLOFENAC SODIUM. [Concomitant]
     Active Substance: DICLOFENAC SODIUM
     Route: 048
  9. SIMVASTATIN. [Concomitant]
     Active Substance: SIMVASTATIN
     Route: 048
  10. PANTOPRAZOLE [Concomitant]
     Active Substance: PANTOPRAZOLE SODIUM
     Route: 048

REACTIONS (5)
  - Blood creatinine increased [Recovered/Resolved]
  - Leukocytosis [Recovered/Resolved]
  - Dehydration [Recovered/Resolved]
  - Haematuria [Not Recovered/Not Resolved]
  - Fatigue [Recovered/Resolved]

NARRATIVE: CASE EVENT DATE: 20130517
